FAERS Safety Report 25245325 (Version 1)
Quarter: 2025Q2

REPORT INFORMATION
  Report Type: Spontaneous
  Country: US (occurrence: US)
  Receive Date: 20250428
  Receipt Date: 20250428
  Transmission Date: 20250717
  Serious: Yes (Other)
  Sender: AUROBINDO
  Company Number: US-AUROBINDO-AUR-APL-2019-035842

PATIENT
  Age: 38 Year
  Sex: Female

DRUGS (14)
  1. SERTRALINE [Suspect]
     Active Substance: SERTRALINE HYDROCHLORIDE
     Indication: Depression
     Route: 065
  2. CARBOPLATIN [Suspect]
     Active Substance: CARBOPLATIN
     Indication: Neuroendocrine tumour
     Route: 065
  3. FLUOROURACIL [Suspect]
     Active Substance: FLUOROURACIL
     Indication: Neuroendocrine tumour
     Route: 065
  4. GABAPENTIN [Suspect]
     Active Substance: GABAPENTIN
     Indication: Product used for unknown indication
     Route: 065
  5. DULOXETINE [Suspect]
     Active Substance: DULOXETINE
     Indication: Product used for unknown indication
     Route: 065
  6. MIRTAZAPINE [Suspect]
     Active Substance: MIRTAZAPINE
     Indication: Depression
     Route: 065
  7. OXYCODONE [Suspect]
     Active Substance: OXYCODONE
     Indication: Pain
     Dosage: 120 MILLIGRAM, TWO TIMES A DAY
     Route: 065
  8. OXYCODONE [Suspect]
     Active Substance: OXYCODONE
     Dosage: 40 MILLIGRAM, EVERY FOUR HOUR
     Route: 065
  9. OXYCODONE [Suspect]
     Active Substance: OXYCODONE
     Dosage: 60 MILLIGRAM, EVERY FOUR HOUR
     Route: 065
  10. HYDROMORPHONE [Suspect]
     Active Substance: HYDROMORPHONE
     Indication: Pain
     Dosage: 6 MILLIGRAM, EVERY TWO HOURS
     Route: 065
  11. ETOPOSIDE [Suspect]
     Active Substance: ETOPOSIDE
     Indication: Neuroendocrine tumour
     Route: 065
  12. PEMBROLIZUMAB [Suspect]
     Active Substance: PEMBROLIZUMAB
     Indication: Neuroendocrine tumour
     Route: 065
  13. STREPTOZOCIN [Suspect]
     Active Substance: STREPTOZOCIN
     Indication: Neuroendocrine tumour
     Route: 065
  14. DOXORUBICIN [Suspect]
     Active Substance: DOXORUBICIN
     Indication: Neuroendocrine tumour
     Route: 065

REACTIONS (4)
  - Drug ineffective [Unknown]
  - Treatment failure [Unknown]
  - Decreased appetite [Unknown]
  - Weight decreased [Unknown]
